FAERS Safety Report 18965185 (Version 2)
Quarter: 2022Q1

REPORT INFORMATION
  Report Type: Spontaneous
  Country: JP (occurrence: JP)
  Receive Date: 20210303
  Receipt Date: 20220301
  Transmission Date: 20220423
  Serious: Yes (Disabling, Other)
  Sender: FDA-Public Use
  Company Number: JP-BAUSCH-BL-2021-006925

PATIENT
  Age: 41 Year
  Sex: Female

DRUGS (2)
  1. LOCOID [Suspect]
     Active Substance: HYDROCORTISONE BUTYRATE
     Indication: Product used for unknown indication
     Route: 061
     Dates: start: 201907, end: 201912
  2. BETAMETHASONE BUTYRATE PROPIONATE [Suspect]
     Active Substance: BETAMETHASONE BUTYRATE PROPIONATE
     Indication: Product used for unknown indication
     Route: 061
     Dates: start: 201901

REACTIONS (1)
  - Glaucoma [Unknown]
